FAERS Safety Report 5223756-7 (Version None)
Quarter: 2007Q1

REPORT INFORMATION
  Report Type: 
  Country: None (occurrence: None)
  Receive Date: 20070125
  Receipt Date: 20070115
  Transmission Date: 20070707
  Serious: Yes (Hospitalization)
  Sender: FDA-Public Use
  Company Number: HQWYE762118JAN07

PATIENT
  Age: 55 Year
  Sex: Female

DRUGS (1)
  1. EFFEXOR [Suspect]
     Dosage: OVERDOSE AMOUNT:  300 MG
     Dates: start: 20030601, end: 20030601

REACTIONS (4)
  - BRADYPNOEA [None]
  - MYDRIASIS [None]
  - OVERDOSE [None]
  - SOMNOLENCE [None]
